FAERS Safety Report 10080754 (Version 1)
Quarter: 2014Q2

REPORT INFORMATION
  Report Type: Other
  Country: GB (occurrence: GB)
  Receive Date: 20140416
  Receipt Date: 20140416
  Transmission Date: 20141212
  Serious: Yes (Death, Other)
  Sender: FDA-Public Use
  Company Number: GB-TARO PHARMACEUTICALS U.S.A., INC-2014SUN00792

PATIENT
  Age: 65 Year
  Sex: Female

DRUGS (12)
  1. WARFARIN [Suspect]
     Indication: PRODUCT USED FOR UNKNOWN INDICATION
     Route: 065
  2. ABATACEPT [Suspect]
     Indication: RHEUMATOID ARTHRITIS
     Dosage: 750 MG, 1DOSE/MONTH
     Route: 042
     Dates: start: 201307
  3. FOLIC ACID [Suspect]
     Indication: RHEUMATOID ARTHRITIS
     Route: 065
  4. HYDROXYCHLOROQUINE [Suspect]
     Indication: PRODUCT USED FOR UNKNOWN INDICATION
     Dosage: 200 MG, BID
     Route: 065
  5. METHOTREXATE [Suspect]
     Indication: RHEUMATOID ARTHRITIS
     Dosage: 5 MG, 1DOSE/1WEEK
     Route: 065
  6. PREDNISOLONE [Suspect]
     Indication: RHEUMATOID ARTHRITIS
     Dosage: 15 MG, QD
     Route: 065
  7. SIMVASTATIN [Suspect]
     Indication: PRODUCT USED FOR UNKNOWN INDICATION
     Dosage: 20 MG, QD
     Route: 065
  8. ALENDRONATE [Concomitant]
     Dosage: 70 MG, UNK
  9. CALCICHEW D3 FORTE [Concomitant]
     Dosage: 2 DF, DAILY
  10. IMMUNOGLOBULIN [Concomitant]
     Route: 058
  11. IODINE [Concomitant]
     Dosage: 600 MG, DAILY
  12. QUININE SULFATE [Concomitant]

REACTIONS (5)
  - Deep vein thrombosis [Fatal]
  - Wound [Fatal]
  - Vascular injury [Fatal]
  - General physical health deterioration [Fatal]
  - Fall [Unknown]
